FAERS Safety Report 8991300 (Version 1)
Quarter: 2012Q4

REPORT INFORMATION
  Report Type: Report from Study
  Country: CA (occurrence: CA)
  Receive Date: 20121231
  Receipt Date: 20121231
  Transmission Date: 20130627
  Serious: Yes (Other)
  Sender: FDA-Public Use
  Company Number: CA-ROCHE-1172378

PATIENT
  Age: 36 Year
  Sex: Female
  Weight: 95.11 kg

DRUGS (1)
  1. OMALIZUMAB [Suspect]
     Indication: ASTHMA
     Route: 058
     Dates: start: 20080917

REACTIONS (15)
  - Bronchitis [Recovering/Resolving]
  - Wheezing [Recovering/Resolving]
  - Pulmonary congestion [Unknown]
  - Cough [Recovering/Resolving]
  - Lung disorder [Unknown]
  - Myalgia [Unknown]
  - Rales [Unknown]
  - Hypoventilation [Unknown]
  - Nasopharyngitis [Unknown]
  - Nasal congestion [Unknown]
  - Blood glucose increased [Unknown]
  - Asthma [Unknown]
  - Fatigue [Unknown]
  - Influenza like illness [Recovering/Resolving]
  - Pneumonia [Unknown]
